FAERS Safety Report 6786747-0 (Version None)
Quarter: 2010Q2

REPORT INFORMATION
  Report Type: 
  Country: None (occurrence: None)
  Receive Date: 20100623
  Receipt Date: 20100610
  Transmission Date: 20101027
  Serious: Yes (Other)
  Sender: FDA-Public Use
  Company Number: TR-ELI_LILLY_AND_COMPANY-TR201006004780

PATIENT
  Age: 13 Year
  Sex: Female
  Weight: 51 kg

DRUGS (2)
  1. STRATTERA [Suspect]
     Dosage: 60 MG, DAILY (1/D)
     Route: 048
     Dates: start: 20100317
  2. FERRO SANOL [Concomitant]
     Indication: MINERAL SUPPLEMENTATION
     Dosage: UNK UNK, DAILY (1/D)

REACTIONS (2)
  - CONDUCT DISORDER [None]
  - SELF INJURIOUS BEHAVIOUR [None]
